FAERS Safety Report 7825189-3 (Version None)
Quarter: 2011Q4

REPORT INFORMATION
  Report Type: 
  Country: None (occurrence: None)
  Receive Date: 20111019
  Receipt Date: 20111010
  Transmission Date: 20120403
  Serious: Yes (Hospitalization)
  Sender: FDA-Public Use
  Company Number: AU-PFIZER INC-2011245315

PATIENT
  Sex: Female

DRUGS (2)
  1. LEXAPRO [Suspect]
     Indication: DEPRESSION
  2. PRISTIQ [Suspect]
     Indication: MAJOR DEPRESSION

REACTIONS (1)
  - HEPATITIS [None]
